FAERS Safety Report 4735197-7 (Version None)
Quarter: 2005Q3

REPORT INFORMATION
  Report Type: 
  Country: None (occurrence: None)
  Receive Date: 20050804
  Receipt Date: 20050721
  Transmission Date: 20060218
  Serious: Yes (Other)
  Sender: FDA-Public Use
  Company Number: 2005105046

PATIENT
  Age: 61 Year
  Sex: Female

DRUGS (6)
  1. MICRONASE [Suspect]
     Indication: DIABETES MELLITUS
     Dosage: UNK (2 IN 1 D), ORAL
     Route: 048
  2. VOLTAREN-XR [Suspect]
     Indication: FIBROMYALGIA
     Dosage: UNK (2 IN 1 D); ORAL
     Route: 048
     Dates: start: 20050505, end: 20050531
  3. VOLTAREN-XR [Suspect]
     Indication: INTERVERTEBRAL DISC DEGENERATION
     Dosage: UNK (2 IN 1 D); ORAL
     Route: 048
     Dates: start: 20050505, end: 20050531
  4. AVANDIA [Concomitant]
  5. TENORMIN [Concomitant]
  6. TAGAMET [Concomitant]

REACTIONS (7)
  - BLOOD GLUCOSE DECREASED [None]
  - FEELING ABNORMAL [None]
  - MUSCLE SPASMS [None]
  - NAUSEA [None]
  - PHARMACEUTICAL PRODUCT COMPLAINT [None]
  - SELF-MEDICATION [None]
  - STOMACH DISCOMFORT [None]
